FAERS Safety Report 23528071 (Version 1)
Quarter: 2024Q1

REPORT INFORMATION
  Report Type: Spontaneous
  Country: FR (occurrence: FR)
  Receive Date: 20240215
  Receipt Date: 20240215
  Transmission Date: 20240410
  Serious: Yes (Hospitalization)
  Sender: FDA-Public Use
  Company Number: None

PATIENT
  Age: 14 Year
  Sex: Female
  Weight: 67 kg

DRUGS (19)
  1. ONDANSETRON [Suspect]
     Active Substance: ONDANSETRON
     Indication: Vomiting
     Route: 042
     Dates: start: 20231230
  2. CIPROFLOXACIN [Suspect]
     Active Substance: CIPROFLOXACIN
     Indication: Ureteritis
     Route: 042
     Dates: start: 20240104, end: 20240114
  3. MEROPENEM ANHYDROUS [Suspect]
     Active Substance: MEROPENEM ANHYDROUS
     Indication: Ureteritis
     Dosage: ROUTE OF ADMIN.- INTRAVENOUS (NOT OTHERWISE SPECIFIED) ( INT )
     Dates: start: 20231231, end: 20240115
  4. HYDROXYZINE HYDROCHLORIDE [Suspect]
     Active Substance: HYDROXYZINE HYDROCHLORIDE
     Indication: Anxiety
     Dates: start: 20240109
  5. ALIZAPRIDE HYDROCHLORIDE [Suspect]
     Active Substance: ALIZAPRIDE HYDROCHLORIDE
     Indication: Nausea
     Dates: start: 20231230, end: 20240115
  6. NEFOPAM HYDROCHLORIDE [Suspect]
     Active Substance: NEFOPAM HYDROCHLORIDE
     Indication: Pain
     Dates: start: 20240106, end: 20240114
  7. TRANEXAMIC ACID [Suspect]
     Active Substance: TRANEXAMIC ACID
     Indication: Haemorrhage
     Dosage: ROUTE OF ADMIN.- ORAL
     Dates: start: 20231230, end: 20240114
  8. PROBENECID [Suspect]
     Active Substance: PROBENECID
     Indication: Nephropathy toxic
     Dosage: ROUTE OF ADMIN.- ORAL
     Dates: start: 20240113, end: 20240126
  9. COLPRONE [Concomitant]
     Active Substance: MEDROGESTONE
     Indication: Product used for unknown indication
     Dates: start: 20231230
  10. MORPHINE [Concomitant]
     Active Substance: MORPHINE
     Indication: Product used for unknown indication
     Dates: start: 20240101
  11. DEXCHLORPHENIRAMINE (MALEATE) [Concomitant]
     Indication: Product used for unknown indication
     Dates: start: 20240104
  12. NALOXONE MERCK 0.4 mg/1 ml, solution for injection in ampoules [Concomitant]
     Indication: Product used for unknown indication
     Dates: start: 20240108, end: 20240114
  13. VERSATIS 5%, medicated plaster [Concomitant]
     Indication: Product used for unknown indication
     Dates: start: 20240112
  14. MELATONIN [Concomitant]
     Active Substance: MELATONIN
     Indication: Product used for unknown indication
     Dates: start: 20240103
  15. HYDROCORTISONE [Concomitant]
     Active Substance: HYDROCORTISONE
     Indication: Product used for unknown indication
     Dates: start: 20231231, end: 20240115
  16. CIDOFOVIR DIHYDRATE [Concomitant]
     Active Substance: CIDOFOVIR
     Indication: Product used for unknown indication
     Dates: start: 20240113
  17. ZARZIO 30 MU/0.5 ml, solution for injection or infusion in pre-filled [Concomitant]
     Indication: Product used for unknown indication
     Dates: start: 20240106
  18. VANCOMYCIN [Concomitant]
     Active Substance: VANCOMYCIN
     Indication: Product used for unknown indication
     Dates: start: 20240112, end: 20240114
  19. SPIRONOLACTONE [Concomitant]
     Active Substance: SPIRONOLACTONE
     Indication: Product used for unknown indication
     Dates: start: 20240112

REACTIONS (3)
  - Drug interaction [Recovering/Resolving]
  - Drug interaction [Recovering/Resolving]
  - Seizure [Recovering/Resolving]

NARRATIVE: CASE EVENT DATE: 20240113
